FAERS Safety Report 9695035 (Version 1)
Quarter: 2013Q4

REPORT INFORMATION
  Report Type: Spontaneous
  Country: BE (occurrence: BE)
  Receive Date: 20131119
  Receipt Date: 20131119
  Transmission Date: 20140711
  Serious: Yes (Life-Threatening, Hospitalization, Other)
  Sender: FDA-Public Use
  Company Number: BE-JNJFOC-20131109124

PATIENT
  Age: 72 Year
  Sex: Male
  Weight: 50 kg

DRUGS (3)
  1. XARELTO [Suspect]
     Indication: PRODUCT USED FOR UNKNOWN INDICATION
     Route: 048
  2. CLEXANE [Suspect]
     Indication: ANTICOAGULANT THERAPY
     Route: 058
     Dates: start: 20131004, end: 20131010
  3. SINTROM [Suspect]
     Indication: VENOUS THROMBOSIS
     Route: 048

REACTIONS (5)
  - Vascular graft thrombosis [Recovering/Resolving]
  - Eye haemorrhage [Recovering/Resolving]
  - Vitreous haemorrhage [Recovering/Resolving]
  - Pulse absent [Recovering/Resolving]
  - Intra-abdominal haematoma [Recovered/Resolved]
